FAERS Safety Report 7398981-X (Version None)
Quarter: 2011Q2

REPORT INFORMATION
  Report Type: 
  Country: None (occurrence: None)
  Receive Date: 20110407
  Receipt Date: 20110331
  Transmission Date: 20111010
  Serious: Yes (Death)
  Sender: FDA-Public Use
  Company Number: MX-ELI_LILLY_AND_COMPANY-MX201104000195

PATIENT
  Age: 56 Year
  Sex: Male

DRUGS (3)
  1. GLIMEPIRIDE [Concomitant]
     Dosage: 1 DF, QD
  2. ZACTOS [Concomitant]
     Indication: DIABETES MELLITUS
     Dosage: 15 MG, QD
     Route: 065
     Dates: start: 20060101
  3. BYETTA [Suspect]
     Indication: DIABETES MELLITUS
     Dosage: 10 UG, BID
     Route: 065

REACTIONS (1)
  - INFARCTION [None]
